FAERS Safety Report 10053453 (Version 1)
Quarter: 2014Q2

REPORT INFORMATION
  Report Type: Spontaneous
  Country: US (occurrence: US)
  Receive Date: 20140402
  Receipt Date: 20140402
  Transmission Date: 20141212
  Serious: Yes (Hospitalization)
  Sender: FDA-Public Use
  Company Number: US-AMGEN-USASP2014021656

PATIENT
  Age: 55 Year
  Sex: Female

DRUGS (2)
  1. NPLATE [Suspect]
     Indication: IMMUNE THROMBOCYTOPENIC PURPURA
     Dosage: UNK
     Route: 065
     Dates: start: 201011
  2. PREDNISONE [Concomitant]
     Dosage: 80 MG, QD
     Route: 065

REACTIONS (2)
  - Intracranial venous sinus thrombosis [Recovered/Resolved]
  - Thrombocytopenia [Recovered/Resolved]
